FAERS Safety Report 20424919 (Version 1)
Quarter: 2022Q1

REPORT INFORMATION
  Report Type: Report from Study
  Country: AU (occurrence: AU)
  Receive Date: 20220204
  Receipt Date: 20220204
  Transmission Date: 20220423
  Serious: No
  Sender: FDA-Public Use
  Company Number: AU-EXELIXIS-CABO-20036254

PATIENT
  Age: 53 Year
  Sex: Female

DRUGS (7)
  1. CABOMETYX [Suspect]
     Active Substance: CABOZANTINIB S-MALATE
     Indication: Thyroid cancer metastatic
     Dosage: 40 MG, QD
     Dates: start: 20210318
  2. MS CONTIN [Concomitant]
     Active Substance: MORPHINE SULFATE
  3. PREGABALIN [Concomitant]
     Active Substance: PREGABALIN
  4. ACETAMINOPHEN\CODEINE PHOSPHATE [Concomitant]
     Active Substance: ACETAMINOPHEN\CODEINE PHOSPHATE
  5. LEVOTHYROXINE [Concomitant]
     Active Substance: LEVOTHYROXINE
  6. DOCUSATE\SENNOSIDES [Concomitant]
     Active Substance: DOCUSATE\SENNOSIDES
  7. MAGNESIUM [Concomitant]
     Active Substance: MAGNESIUM

REACTIONS (3)
  - Toxicity to various agents [Unknown]
  - Bone pain [Not Recovered/Not Resolved]
  - Off label use [Unknown]

NARRATIVE: CASE EVENT DATE: 20210412
